FAERS Safety Report 20045169 (Version 1)
Quarter: 2021Q4

REPORT INFORMATION
  Report Type: Spontaneous
  Country: DE (occurrence: DE)
  Receive Date: 20211108
  Receipt Date: 20211108
  Transmission Date: 20220303
  Serious: Yes (Hospitalization)
  Sender: FDA-Public Use
  Company Number: DE-ADRED-06822-01

PATIENT
  Age: 69 Year
  Sex: Male

DRUGS (13)
  1. BACLOFEN [Suspect]
     Active Substance: BACLOFEN
     Indication: Product used for unknown indication
     Dosage: 10 MILLIGRAM, 0-0-0-2, TABLETTEN
     Route: 048
  2. METHYLPREDNISOLONE [Suspect]
     Active Substance: METHYLPREDNISOLONE
     Indication: Product used for unknown indication
     Dosage: 500 MG, BY REGIMEN
  3. DALFAMPRIDINE [Suspect]
     Active Substance: DALFAMPRIDINE
     Indication: Product used for unknown indication
     Dosage: 10 MILLIGRAM, BID, 1-0-1-0, RETARD-TABLETTEN
     Route: 048
  4. PANTOPRAZOLE [Concomitant]
     Active Substance: PANTOPRAZOLE
     Dosage: 20 MILLIGRAM, QD,  1-0-0-0, TABLETTEN
     Route: 048
  5. CERTOPARIN SODIUM [Concomitant]
     Active Substance: CERTOPARIN SODIUM
     Dosage: 3000 IU, 0-0-1-0, PREFILLED SYRINGES
     Route: 058
  6. TORSEMIDE [Concomitant]
     Active Substance: TORSEMIDE
     Dosage: 10 MILLIGRAM, 0.5-0.5-0-0, TABLETTEN
     Route: 048
  7. NABIXIMOLS [Concomitant]
     Active Substance: NABIXIMOLS
     Dosage: 2.7/2.5 MG, 2-2-4-0, DOSING SPRAY
     Route: 049
  8. METFORMIN [Concomitant]
     Active Substance: METFORMIN HYDROCHLORIDE
     Dosage: 100 MILLIGRAM, BID, 1-0-1-0, TABLETTEN
     Route: 048
  9. LEVOTHYROXINE SODIUM [Concomitant]
     Active Substance: LEVOTHYROXINE SODIUM
     Dosage: 25 MICROGRAM, QD, 1-0-0-0, TABLETS
     Route: 048
  10. INSULIN HUMAN [Concomitant]
     Active Substance: INSULIN HUMAN
     Dosage: 1 IE, 0-0-10-0, PREFILLED SYRINGES
     Route: 058
  11. PREGABALIN [Concomitant]
     Active Substance: PREGABALIN
     Dosage: 100 MILLIGRAM, 1-1-0-2, CAPSULE
     Route: 048
  12. INSULIN ASPART [Concomitant]
     Active Substance: INSULIN ASPART
     Dosage: 1 IU, DEMAND, PREFILLED SYRINGES
     Route: 058
  13. ATORVASTATIN [Concomitant]
     Active Substance: ATORVASTATIN
     Dosage: 10 MILLIGRAM, QD,  0-0-1-0, TABLETTEN
     Route: 048

REACTIONS (3)
  - Haematuria [Unknown]
  - General physical health deterioration [Unknown]
  - Pyrexia [Unknown]
